FAERS Safety Report 7612115-5 (Version None)
Quarter: 2011Q3

REPORT INFORMATION
  Report Type: 
  Country: None (occurrence: None)
  Receive Date: 20110715
  Receipt Date: 20110705
  Transmission Date: 20111222
  Serious: Yes (Hospitalization, Other)
  Sender: FDA-Public Use
  Company Number: US-ELI_LILLY_AND_COMPANY-US201002004004

PATIENT
  Sex: Male
  Weight: 104 kg

DRUGS (9)
  1. METFORMIN HCL [Concomitant]
     Dosage: UNK
  2. NSAID'S [Concomitant]
     Indication: PAIN
     Dosage: UNK
     Dates: start: 20010805, end: 20100212
  3. AVANDARYL [Concomitant]
     Dosage: UNK
     Dates: start: 20060821, end: 20090505
  4. NAPROXEN [Concomitant]
     Indication: PAIN
     Dosage: UNK
     Dates: start: 20010805, end: 20100212
  5. BYETTA [Suspect]
     Dosage: UNK, UNKNOWN
     Route: 065
     Dates: start: 20070112, end: 20081217
  6. ZOLOFT [Concomitant]
     Indication: DEPRESSION
     Dosage: UNK
     Dates: start: 20030806, end: 20100712
  7. GLUCOPHAGE [Concomitant]
     Dosage: UNK
     Dates: end: 20080712
  8. NAPROXEN (ALEVE) [Concomitant]
  9. LISINOPRIL [Concomitant]
     Indication: HYPERTENSION

REACTIONS (2)
  - INFECTION [None]
  - PANCREATITIS ACUTE [None]
